FAERS Safety Report 5151731-X (Version None)
Quarter: 2006Q4

REPORT INFORMATION
  Report Type: 
  Country: None (occurrence: None)
  Receive Date: 20061109
  Receipt Date: 20061027
  Transmission Date: 20070319
  Serious: Yes (Other)
  Sender: FDA-Public Use
  Company Number: 2006096556

PATIENT
  Age: 76 Year
  Sex: Male
  Weight: 82.5 kg

DRUGS (8)
  1. SUTENT [Suspect]
     Indication: MALIGNANT MELANOMA
     Dosage: 25 MG (25 MG, 1 IN 1 D); ORAL
     Route: 048
     Dates: start: 20060608, end: 20060804
  2. CARBOPLATIN [Suspect]
     Indication: MALIGNANT MELANOMA
     Dosage: 387 MG (1 IN 21 D); INTRAVENOUS
     Route: 042
     Dates: start: 20060615, end: 20060728
  3. TAXOL [Suspect]
     Indication: MALIGNANT MELANOMA
     Dosage: 284 MG (135 MG/M*2, 1 IN 21 D); INTRAVENOUS
     Route: 042
     Dates: start: 20060615, end: 20060728
  4. PAROXETINE HCL [Concomitant]
  5. ACETAMINOPHEN [Concomitant]
  6. LISINOPRIL [Concomitant]
  7. VITAMIN CAP [Concomitant]
  8. MILK OF MAGNESIA TAB [Concomitant]

REACTIONS (4)
  - BLINDNESS [None]
  - DRUG TOXICITY [None]
  - PAPILLOEDEMA [None]
  - RETINOPATHY HYPERTENSIVE [None]
